FAERS Safety Report 17754095 (Version 1)
Quarter: 2020Q2

REPORT INFORMATION
  Report Type: Spontaneous
  Country: DE (occurrence: DE)
  Receive Date: 20200506
  Receipt Date: 20200506
  Transmission Date: 20200714
  Serious: Yes (Disabling, Congenital Anomaly, Other)
  Sender: FDA-Public Use
  Company Number: DE-PFIZER INC-2020167354

PATIENT

DRUGS (1)
  1. CYTOTEC [Suspect]
     Active Substance: MISOPROSTOL
     Indication: LABOUR INDUCTION
     Dosage: REPEATEDLY IN 4 DOSES (2,1,1 / 2) ON THE FIRST DAY OXYTOCIN TEST, THEN ONE THE REST THE NEXT DAY
     Route: 064
     Dates: start: 20070509, end: 20070510

REACTIONS (4)
  - Congenital brain damage [Recovered/Resolved with Sequelae]
  - Foetal cerebrovascular disorder [Unknown]
  - Foetal heart rate decreased [Unknown]
  - Foetal exposure during delivery [Unknown]

NARRATIVE: CASE EVENT DATE: 20070509
